FAERS Safety Report 9165057 (Version 2)
Quarter: 2013Q2

REPORT INFORMATION
  Report Type: Spontaneous
  Country: JP (occurrence: JP)
  Receive Date: 20130315
  Receipt Date: 20130410
  Transmission Date: 20140414
  Serious: Yes (Hospitalization, Other)
  Sender: FDA-Public Use
  Company Number: JP-PFIZER INC-2013084772

PATIENT
  Age: 49 Year
  Sex: Female
  Weight: 43.5 kg

DRUGS (8)
  1. CELECOX [Suspect]
     Indication: SJOGREN^S SYNDROME
     Dosage: 100 MG, AS NEEDED
     Route: 048
     Dates: start: 20090907, end: 20121012
  2. CELECOX [Suspect]
     Indication: HEADACHE
  3. CELECOX [Suspect]
     Indication: ARTHRALGIA
  4. PREDNISOLONE [Suspect]
     Indication: ERYTHEMA ANNULARE
     Dosage: UNK
     Dates: start: 20100621
  5. CINAL [Concomitant]
     Indication: PIGMENTATION DISORDER
     Dosage: UNK
     Dates: start: 20111121
  6. MYSLEE [Concomitant]
     Indication: INSOMNIA
     Dosage: UNK
     Dates: start: 20120903, end: 20121204
  7. COMELIAN [Concomitant]
     Indication: GLOMERULONEPHRITIS CHRONIC
     Dosage: UNK
  8. DEPAS [Concomitant]
     Indication: INSOMNIA
     Dosage: UNK
     Dates: end: 20121012

REACTIONS (5)
  - Meningitis [Recovering/Resolving]
  - Headache [Recovering/Resolving]
  - Sjogren^s syndrome [Unknown]
  - Off label use [Unknown]
  - Drug ineffective for unapproved indication [Unknown]
